FAERS Safety Report 5829013-X (Version None)
Quarter: 2008Q3

REPORT INFORMATION
  Report Type: 
  Country: None (occurrence: None)
  Receive Date: 20080731
  Receipt Date: 20080731
  Transmission Date: 20090109
  Serious: Yes (Hospitalization)
  Sender: FDA-Public Use
  Company Number: PHEH2000US01551

PATIENT
  Sex: Male
  Weight: 78 kg

DRUGS (19)
  1. RAD 666 RAD+ [Suspect]
     Indication: LUNG TRANSPLANT
     Dosage: 1.5 MG, BID
     Route: 048
     Dates: start: 20000131
  2. NEORAL [Suspect]
     Indication: LUNG TRANSPLANT
     Route: 048
     Dates: start: 20000131, end: 20000403
  3. LIPITOR [Concomitant]
  4. BIAXIN [Concomitant]
  5. BACTRIM DS [Concomitant]
  6. AXID [Concomitant]
  7. CYTOVENE [Concomitant]
  8. NYSTATIN [Concomitant]
  9. LASIX [Concomitant]
  10. MAG-OX [Concomitant]
  11. IRON [Concomitant]
  12. FOLIC ACID [Concomitant]
  13. SINGULAIR [Concomitant]
  14. CLONIDINE [Concomitant]
  15. AUGMENTIN '125' [Concomitant]
  16. ZYRTEC [Concomitant]
  17. ALBUTEROL [Concomitant]
  18. ATROVENT [Concomitant]
  19. POTASSIUM CHLORIDE [Concomitant]

REACTIONS (2)
  - PANCYTOPENIA [None]
  - RENAL FAILURE ACUTE [None]
